FAERS Safety Report 18136128 (Version 5)
Quarter: 2020Q4

REPORT INFORMATION
  Report Type: Report from Study
  Country: US (occurrence: US)
  Receive Date: 20200811
  Receipt Date: 20201218
  Transmission Date: 20210113
  Serious: Yes (Other)
  Sender: FDA-Public Use
  Company Number: US-GLAXOSMITHKLINE-US2020AMR151902

PATIENT
  Sex: Female
  Weight: 48.98 kg

DRUGS (5)
  1. NIRAPARIB [Suspect]
     Active Substance: NIRAPARIB
     Dosage: 100 MG, QOD
     Dates: start: 20200915, end: 20201026
  2. NIRAPARIB [Suspect]
     Active Substance: NIRAPARIB
     Indication: OVARIAN CANCER
     Dosage: 200 MG, QD
     Dates: start: 20200710, end: 20200716
  3. NIRAPARIB [Suspect]
     Active Substance: NIRAPARIB
     Dosage: 200 MG, QD
     Dates: start: 20200812
  4. NIRAPARIB [Suspect]
     Active Substance: NIRAPARIB
     Dosage: 200 MG, QD
     Dates: start: 20201027
  5. ENTRESTO [Concomitant]
     Active Substance: SACUBITRIL\VALSARTAN
     Indication: PRODUCT USED FOR UNKNOWN INDICATION
     Dosage: UNK UNK, BID

REACTIONS (8)
  - Pollakiuria [Unknown]
  - Fatigue [Not Recovered/Not Resolved]
  - Ejection fraction decreased [Unknown]
  - Clostridium difficile infection [Unknown]
  - Platelet count decreased [Unknown]
  - Blood pressure increased [Unknown]
  - Asthenia [Recovered/Resolved]
  - Disease complication [Unknown]
